FAERS Safety Report 8504900 (Version 4)
Quarter: 2013Q2

REPORT INFORMATION
  Report Type: Spontaneous
  Country: FR (occurrence: FR)
  Receive Date: 20120411
  Receipt Date: 20130508
  Transmission Date: 20140414
  Serious: Yes (Hospitalization, Other)
  Sender: FDA-Public Use
  Company Number: FR-BRISTOL-MYERS SQUIBB COMPANY-16500969

PATIENT
  Age: 48 Year
  Sex: Male

DRUGS (13)
  1. ETOPOPHOS FOR INJ 100 MG [Suspect]
     Indication: DIFFUSE LARGE B-CELL LYMPHOMA
     Dosage: REINDUCTION ON 01-FEB-2013
     Route: 042
     Dates: start: 20100531, end: 20100930
  2. ENDOXAN INJ [Suspect]
     Indication: DIFFUSE LARGE B-CELL LYMPHOMA
     Route: 042
     Dates: start: 20100205, end: 20120327
  3. HOLOXAN [Suspect]
     Indication: DIFFUSE LARGE B-CELL LYMPHOMA
     Route: 042
     Dates: start: 20100531, end: 20100930
  4. CARDIOXANE [Suspect]
     Indication: DIFFUSE LARGE B-CELL LYMPHOMA
     Dosage: CARDIOXANE 500 MG,POWDER FOR SOLUTION FOR INFUSION
     Route: 042
     Dates: start: 20100205, end: 20100327
  5. DOXORUBICINE [Suspect]
     Indication: DIFFUSE LARGE B-CELL LYMPHOMA
     Route: 042
     Dates: start: 20100205, end: 20100327
  6. METHOTREXATE [Suspect]
     Indication: DIFFUSE LARGE B-CELL LYMPHOMA
     Dosage: 05FEB10 TO 27MAR10 AND 29APR10 TO 14MAY10
     Route: 037
     Dates: start: 20100205, end: 20100514
  7. BLEOMYCINE BELLON [Suspect]
     Indication: DIFFUSE LARGE B-CELL LYMPHOMA
     Dosage: BLEOMYCINE BELLON 15 MG, POWDER FOR SOLUTION FOR INJECTION
     Route: 042
     Dates: start: 20100205, end: 20100323
  8. MABTHERA [Suspect]
     Indication: DIFFUSE LARGE B-CELL LYMPHOMA
     Dosage: FROM 05FEB10 TO 27MAR10. THEN AGAIN FROM 31MAY10
     Route: 042
     Dates: start: 20100205
  9. ARACYTINE [Suspect]
     Indication: DIFFUSE LARGE B-CELL LYMPHOMA
     Dosage: REINDUCTION ON 01-FEB-2013
     Route: 042
     Dates: end: 20100930
  10. ELDISINE [Suspect]
     Indication: DIFFUSE LARGE B-CELL LYMPHOMA
     Dates: start: 20100205, end: 20100327
  11. PREDNISONE [Suspect]
     Indication: DIFFUSE LARGE B-CELL LYMPHOMA
     Dates: start: 20100205, end: 20100327
  12. DAUNORUBICIN [Suspect]
     Indication: ACUTE MYELOID LEUKAEMIA
  13. MITOXANTRONE [Suspect]
     Dates: start: 20130201

REACTIONS (3)
  - Acute myelomonocytic leukaemia [Not Recovered/Not Resolved]
  - Malignant neoplasm progression [Not Recovered/Not Resolved]
  - Hyperthermia [Not Recovered/Not Resolved]
